FAERS Safety Report 12746428 (Version 3)
Quarter: 2016Q4

REPORT INFORMATION
  Report Type: Spontaneous
  Country: BR (occurrence: BR)
  Receive Date: 20160915
  Receipt Date: 20161012
  Transmission Date: 20170207
  Serious: Yes (Death, Hospitalization, Other)
  Sender: FDA-Public Use
  Company Number: BR-GE HEALTHCARE MEDICAL DIAGNOSTICS-OMPQ-PR-1603S-0378

PATIENT
  Age: 50 Year
  Sex: Female
  Weight: 55 kg

DRUGS (3)
  1. OMNIPAQUE [Suspect]
     Active Substance: IOHEXOL
     Indication: DIAGNOSTIC PROCEDURE
     Route: 065
     Dates: start: 20160311, end: 20160311
  2. OMNIPAQUE [Suspect]
     Active Substance: IOHEXOL
     Route: 065
     Dates: start: 20160404, end: 20160404
  3. OMNIPAQUE [Suspect]
     Active Substance: IOHEXOL
     Indication: DYSPHAGIA
     Route: 042
     Dates: start: 20160308, end: 20160308

REACTIONS (25)
  - Cardio-respiratory arrest [Recovered/Resolved with Sequelae]
  - Tachycardia [Unknown]
  - Cardio-respiratory arrest [Recovered/Resolved with Sequelae]
  - Endocarditis [Unknown]
  - Epistaxis [Unknown]
  - Muscle injury [Unknown]
  - Respiratory acidosis [Unknown]
  - Hypertension [Unknown]
  - Red man syndrome [Unknown]
  - Tracheostomy [Not Recovered/Not Resolved]
  - Leukocytosis [Unknown]
  - Haemorrhage [Unknown]
  - Anaphylactic shock [Recovered/Resolved with Sequelae]
  - Acinetobacter test positive [Unknown]
  - Hypotension [Unknown]
  - Pyrexia [Unknown]
  - Respiratory failure [Not Recovered/Not Resolved]
  - Cardio-respiratory arrest [Fatal]
  - Lung consolidation [Unknown]
  - Electrocardiogram ST segment elevation [Unknown]
  - Tracheo-oesophageal fistula [Unknown]
  - Weaning failure [Not Recovered/Not Resolved]
  - Post procedural haemorrhage [Unknown]
  - Pleural effusion [Unknown]
  - Haemoglobin decreased [Unknown]

NARRATIVE: CASE EVENT DATE: 20160308
